FAERS Safety Report 9508310 (Version 1)
Quarter: 2013Q3

REPORT INFORMATION
  Report Type: Spontaneous
  Country: GB (occurrence: None)
  Receive Date: 20130905
  Receipt Date: 20130905
  Transmission Date: 20140515
  Serious: Yes (Life-Threatening, Hospitalization)
  Sender: FDA-Public Use
  Company Number: GER/UKI/13/0034368

PATIENT
  Age: 86 Year
  Sex: Female

DRUGS (3)
  1. CLOPIDOGREL (CLOPIDOGREL) [Suspect]
     Indication: PRODUCT USED FOR UNKNOWN INDICATION
     Route: 048
     Dates: start: 20130808, end: 20130809
  2. APIXABAN [Suspect]
     Indication: THROMBOSIS PROPHYLAXIS
  3. ASPIRIN (ACETYLSALICYLIC ACID) [Suspect]
     Indication: THROMBOSIS
     Route: 048

REACTIONS (2)
  - Haemoglobin decreased [None]
  - Gastrointestinal haemorrhage [None]
